FAERS Safety Report 11174759 (Version 1)
Quarter: 2015Q2

REPORT INFORMATION
  Report Type: Spontaneous
  Country: US (occurrence: None)
  Receive Date: 20150608
  Receipt Date: 20150608
  Transmission Date: 20150821
  Serious: Yes (Life-Threatening, Hospitalization)
  Sender: FDA-Public Use
  Company Number: None

PATIENT
  Age: 82 Year
  Sex: Female
  Weight: 75.75 kg

DRUGS (12)
  1. ZETIA [Concomitant]
     Active Substance: EZETIMIBE
  2. VITAMIN D3 [Concomitant]
     Active Substance: CHOLECALCIFEROL
  3. METOPROLOL TARTRATE. [Concomitant]
     Active Substance: METOPROLOL TARTRATE
  4. NITROGLYCERIN. [Concomitant]
     Active Substance: NITROGLYCERIN
  5. VENTOLIN HFA [Concomitant]
     Active Substance: ALBUTEROL SULFATE
  6. OCULAR LUBRICANT [Concomitant]
  7. AMIODARONE [Suspect]
     Active Substance: AMIODARONE
     Indication: HEART RATE IRREGULAR
     Dosage: 2 PILLS
     Route: 048
     Dates: start: 20140822
  8. ASPIRIN. [Concomitant]
     Active Substance: ASPIRIN
  9. LASIX [Concomitant]
     Active Substance: FUROSEMIDE
  10. MULTIVITAMIN [Concomitant]
     Active Substance: VITAMINS
  11. FISH OIL [Concomitant]
     Active Substance: FISH OIL
  12. ALLOPURINOL. [Concomitant]
     Active Substance: ALLOPURINOL

REACTIONS (10)
  - Hypoaesthesia [None]
  - Chest discomfort [None]
  - Vision blurred [None]
  - Cough [None]
  - Gout [None]
  - Chest pain [None]
  - Pulmonary oedema [None]
  - Eye disorder [None]
  - Oropharyngeal pain [None]
  - Dyspnoea [None]

NARRATIVE: CASE EVENT DATE: 20140822
